FAERS Safety Report 19589092 (Version 1)
Quarter: 2021Q3

REPORT INFORMATION
  Report Type: Spontaneous
  Country: CN (occurrence: CN)
  Receive Date: 20210721
  Receipt Date: 20210721
  Transmission Date: 20211014
  Serious: Yes (Other)
  Sender: FDA-Public Use
  Company Number: CN-PFIZER INC-2021565870

PATIENT
  Age: 60 Year
  Sex: Male

DRUGS (1)
  1. XALKORI [Suspect]
     Active Substance: CRIZOTINIB
     Indication: LUNG NEOPLASM MALIGNANT
     Dosage: UNK
     Route: 048

REACTIONS (8)
  - Hepatic function abnormal [Unknown]
  - Renal impairment [Unknown]
  - Decreased appetite [Recovering/Resolving]
  - Dyspepsia [Recovering/Resolving]
  - Rash [Recovering/Resolving]
  - Mental disorder [Unknown]
  - Acne [Unknown]
  - Diarrhoea [Recovering/Resolving]
